FAERS Safety Report 5993972-5 (Version None)
Quarter: 2008Q4

REPORT INFORMATION
  Report Type: 
  Country: None (occurrence: None)
  Receive Date: 20081212
  Receipt Date: 20081204
  Transmission Date: 20090506
  Serious: Yes (Hospitalization)
  Sender: FDA-Public Use
  Company Number: B0548952A

PATIENT
  Age: 42 Year
  Sex: Female

DRUGS (2)
  1. LANVIS [Suspect]
     Indication: CROHN'S DISEASE
     Dosage: 1.5UNIT PER DAY
     Route: 048
     Dates: start: 20070201
  2. REMICADE [Suspect]
     Indication: CROHN'S DISEASE
     Route: 042
     Dates: start: 20070108, end: 20070219

REACTIONS (3)
  - EYE PAIN [None]
  - OPTIC NEURITIS [None]
  - VISUAL ACUITY REDUCED [None]
